FAERS Safety Report 11181487 (Version 2)
Quarter: 2016Q3

REPORT INFORMATION
  Report Type: Spontaneous
  Country: US (occurrence: US)
  Receive Date: 20150611
  Receipt Date: 20160915
  Transmission Date: 20161109
  Serious: No
  Sender: FDA-Public Use
  Company Number: US-ASTELLAS-2015US012507

PATIENT
  Sex: Male

DRUGS (2)
  1. PROVENGE [Concomitant]
     Active Substance: SIPULEUCEL-T
     Indication: PRODUCT USED FOR UNKNOWN INDICATION
     Dosage: UNK UNK, UNKNOWN FREQ.
     Route: 065
     Dates: end: 201506
  2. XTANDI [Suspect]
     Active Substance: ENZALUTAMIDE
     Indication: PROSTATE CANCER
     Route: 048
     Dates: start: 2015

REACTIONS (6)
  - Hot flush [Unknown]
  - Vision blurred [Unknown]
  - Rash [Unknown]
  - Fatigue [Unknown]
  - Muscular weakness [Unknown]
  - Prostatic specific antigen increased [Unknown]
